FAERS Safety Report 10862674 (Version 1)
Quarter: 2015Q1

REPORT INFORMATION
  Report Type: Spontaneous
  Country: GB (occurrence: GB)
  Receive Date: 20150223
  Receipt Date: 20150223
  Transmission Date: 20150721
  Serious: Yes (Life-Threatening, Hospitalization)
  Sender: FDA-Public Use
  Company Number: GB-SA-2015SA019900

PATIENT
  Age: 21 Year
  Sex: Male
  Weight: 77.8 kg

DRUGS (5)
  1. TRAMADOL [Concomitant]
     Active Substance: TRAMADOL
     Dosage: DOSE:50-100 MG
  2. OXYNORM [Concomitant]
     Active Substance: OXYCODONE HYDROCHLORIDE
     Dosage: DOSE: 05-15 MG
  3. OXYCONTIN [Concomitant]
     Active Substance: OXYCODONE HYDROCHLORIDE
  4. CYCLIZINE [Concomitant]
     Active Substance: CYCLIZINE
     Dosage: ROUTE:PER ORAL / INTRAVENOUS
  5. CEREZYME [Suspect]
     Active Substance: IMIGLUCERASE
     Indication: GAUCHER^S DISEASE
     Dosage: 2000 IU ALTERNATING WITH 1600 IU WEEKLY. TOTAL 3600
     Route: 042
     Dates: start: 2010

REACTIONS (10)
  - Back pain [Recovered/Resolved]
  - Abdominal pain [Recovered/Resolved]
  - Seizure [Recovered/Resolved]
  - Pain in extremity [Recovered/Resolved]
  - Tongue biting [Recovered/Resolved]
  - Swollen tongue [Recovering/Resolving]
  - Confusional state [Recovered/Resolved]
  - Stridor [Recovering/Resolving]
  - Metabolic acidosis [Unknown]
  - Vomiting [Recovered/Resolved]

NARRATIVE: CASE EVENT DATE: 2015
